FAERS Safety Report 8421059-0 (Version None)
Quarter: 2012Q2

REPORT INFORMATION
  Report Type: 
  Country: None (occurrence: None)
  Receive Date: 20120608
  Receipt Date: 20120604
  Transmission Date: 20120825
  Serious: Yes (Death)
  Sender: FDA-Public Use
  Company Number: KR-US-EMD SERONO, INC.-7137594

PATIENT
  Sex: Female

DRUGS (1)
  1. REBIF [Suspect]
     Indication: IMMUNOMODULATORY THERAPY
     Route: 058
     Dates: start: 20110128, end: 20120527

REACTIONS (5)
  - DEATH [None]
  - ASTHENIA [None]
  - SOMNOLENCE [None]
  - OFF LABEL USE [None]
  - DYSARTHRIA [None]
